FAERS Safety Report 22656565 (Version 1)
Quarter: 2023Q2

REPORT INFORMATION
  Report Type: Report from Study
  Country: US (occurrence: US)
  Receive Date: 20230630
  Receipt Date: 20230630
  Transmission Date: 20230722
  Serious: Yes (Other)
  Sender: FDA-Public Use
  Company Number: US-ABBVIE-5308303

PATIENT

DRUGS (2)
  1. VENCLEXTA [Suspect]
     Active Substance: VENETOCLAX
     Indication: B-cell small lymphocytic lymphoma
     Dosage: FORM STRENGTH 100 MILLIGRAMS?TOOK TABLETS BY MOUTH ONCE DAILY WITH FOOD AND A FULL GLASS OF WATER...
     Route: 048
     Dates: end: 2023
  2. VENCLEXTA [Suspect]
     Active Substance: VENETOCLAX
     Indication: B-cell small lymphocytic lymphoma
     Dosage: FORM STRENGTH 100 MILLIGRAMS?TOOK TABLETS BY MOUTH ONCE DAILY WITH FOOD AND A FULL GLASS OF WATER...
     Route: 048
     Dates: start: 202305

REACTIONS (1)
  - Pulmonary oedema [Recovering/Resolving]
